FAERS Safety Report 8459067-6 (Version None)
Quarter: 2012Q2

REPORT INFORMATION
  Report Type: 
  Country: None (occurrence: None)
  Receive Date: 20120615
  Receipt Date: 20120602
  Transmission Date: 20120825
  Serious: Yes (Hospitalization, Other)
  Sender: FDA-Public Use
  Company Number: JP-2012-13541

PATIENT
  Age: 57 Year
  Sex: Male
  Weight: 48 kg

DRUGS (20)
  1. SPIRONOLACTONE [Suspect]
     Indication: CARDIAC FAILURE
     Dosage: 25 MG MILLIGRAM(S), DAILY DOSE, ORAL
     Route: 048
     Dates: end: 20120121
  2. LENDEM (BROTIZOLAM) TABLET [Concomitant]
  3. LASIX [Suspect]
     Indication: CARDIAC FAILURE
     Dosage: 10 MG MILLIGRAM(S), DAILY DOSE, INTRAVENOUS
     Route: 042
     Dates: start: 20120118
  4. WARFARIN SODIUM [Concomitant]
  5. FUROSEMIDE [Concomitant]
  6. SAMSCA [Suspect]
     Indication: FLUID RETENTION
     Dosage: 15 MG MILLIGRAM(S), QAM, ORAL
     Route: 048
     Dates: start: 20120119, end: 20120121
  7. DIART (AZOSEMIDE) TABLET [Suspect]
     Indication: CARDIAC FAILURE
     Dosage: 60 MG MILLIGRAM(S), DAILY DOSE, ORAL
     Route: 048
     Dates: end: 20120121
  8. RABEPRAZOLE SODIUM [Concomitant]
  9. HERPAMINE (DENOPAMINE) TABLET [Concomitant]
  10. CARVEDILOL [Concomitant]
  11. VITAMEDIN (BENFOTIAMINE, CYANOCOBALAMIN, PYRIDOXINE HYDROCHLORIDE) INJ [Concomitant]
  12. ALDACTONE [Suspect]
     Dosage: UNK, ORAL
     Route: 048
  13. SLOW-K [Concomitant]
  14. DOBUPUM (DOBUTAMINE HYDROCHLORIDE) INJECTION [Concomitant]
  15. FERROMIA (FERROUS SODIUM CITRATE) [Concomitant]
  16. KCI (KCI) INJECTION [Concomitant]
  17. DEPAS (ETIZOLAM) [Concomitant]
  18. LUPRAC (TORASEMIDE) TABLET [Concomitant]
  19. HALFDIGOXIN (DIGOXIN) TABLET [Concomitant]
  20. HARNAL (TAMSULOSIN HYDROCHLORIDE) TABLET [Concomitant]

REACTIONS (4)
  - BLOOD PRESSURE DECREASED [None]
  - POLYURIA [None]
  - VENTRICULAR TACHYCARDIA [None]
  - THIRST [None]
